FAERS Safety Report 12722938 (Version 2)
Quarter: 2016Q3

REPORT INFORMATION
  Report Type: Report from Study
  Country: IN (occurrence: IN)
  Receive Date: 20160908
  Receipt Date: 20160914
  Transmission Date: 20161109
  Serious: Yes (Death, Other)
  Sender: FDA-Public Use
  Company Number: IN-CIPLA LTD.-2016IN17969

PATIENT

DRUGS (6)
  1. CYCLOPHOSPHAMIDE. [Suspect]
     Active Substance: CYCLOPHOSPHAMIDE
     Indication: RETINOBLASTOMA
     Dosage: 65 MG/KG, ON DAY 1 OF WEEKS 0, 6, 12, AND 18
     Route: 065
  2. VINCRISTINE [Suspect]
     Active Substance: VINCRISTINE
     Indication: RETINOBLASTOMA
     Dosage: 1.5 MG/M2 OR 0.05 MG/KG FOR CHILDREN { 3, ON DAY 1 OF WEEKS 0, 6, 12, AND 18
     Route: 065
  3. MESNA. [Suspect]
     Active Substance: MESNA
     Dosage: 60 MG/KG, UNK
     Route: 065
  4. ETOPOSIDE. [Suspect]
     Active Substance: ETOPOSIDE
     Indication: RETINOBLASTOMA
     Dosage: 100 MG/M2 OR 3.3 MG/KG FOR CHILDREN { 3, ON DAYS 1, 2, AND 3 FOR WEEKS 3, 9, 15, AND 21
     Route: 065
  5. IDARUBICIN [Suspect]
     Active Substance: IDARUBICIN
     Indication: RETINOBLASTOMA
     Dosage: 10 MG/M2, ON DAY 1 OF WEEKS 0, 6, 12, AND 18
     Route: 065
  6. CARBOPLATIN. [Suspect]
     Active Substance: CARBOPLATIN
     Indication: RETINOBLASTOMA
     Dosage: 560 MG/M2 OR 18.6 MG/KG FOR CHILDREN { 3, DAY 1 AND 2 ON WEEKS 3, 9, 15, AND 21
     Route: 065

REACTIONS (2)
  - Sepsis [Fatal]
  - Febrile neutropenia [Unknown]
